FAERS Safety Report 6631243-4 (Version None)
Quarter: 2010Q1

REPORT INFORMATION
  Report Type: 
  Country: None (occurrence: None)
  Receive Date: 20100312
  Receipt Date: 20100305
  Transmission Date: 20100710
  Serious: Yes (Other)
  Sender: FDA-Public Use
  Company Number: US-BIOGENIDEC-2010BI007648

PATIENT
  Sex: Female

DRUGS (1)
  1. AVONEX [Suspect]
     Indication: MULTIPLE SCLEROSIS
     Route: 030
     Dates: end: 20030701

REACTIONS (5)
  - AMNESIA [None]
  - CAPILLARY DISORDER [None]
  - COGNITIVE DISORDER [None]
  - FATIGUE [None]
  - INFLUENZA LIKE ILLNESS [None]
